FAERS Safety Report 8810710 (Version 1)
Quarter: 2012Q4

REPORT INFORMATION
  Report Type: 
  Country: US (occurrence: US)
  Receive Date: 20120927
  Receipt Date: 20120927
  Transmission Date: 20130627
  Serious: No
  Sender: FDA-Public Use
  Company Number: US-PFIZER INC-2012237643

PATIENT
  Age: 66 Year
  Sex: Female

DRUGS (1)
  1. SUTENT [Suspect]
     Indication: PANCREATIC CARCINOMA
     Dosage: 12.5mg, 25mg daily
     Dates: start: 20120731, end: 20120924

REACTIONS (2)
  - Disease progression [Unknown]
  - Pancreatic carcinoma [Unknown]
